FAERS Safety Report 18899371 (Version 1)
Quarter: 2021Q1

REPORT INFORMATION
  Report Type: Spontaneous
  Country: US (occurrence: US)
  Receive Date: 20210216
  Receipt Date: 20210216
  Transmission Date: 20210420
  Serious: No
  Sender: FDA-Public Use
  Company Number: US-PERRIGO-20US002956

PATIENT
  Sex: Female

DRUGS (1)
  1. DESONIDE. [Suspect]
     Active Substance: DESONIDE
     Indication: SEBORRHOEIC DERMATITIS
     Dosage: UNKNOWN, UNKNOWN
     Route: 061

REACTIONS (1)
  - Condition aggravated [Unknown]
